FAERS Safety Report 13338929 (Version 2)
Quarter: 2017Q1

REPORT INFORMATION
  Report Type: Report from Study
  Country: US (occurrence: US)
  Receive Date: 20170315
  Receipt Date: 20170331
  Transmission Date: 20170428
  Serious: Yes (Other)
  Sender: FDA-Public Use
  Company Number: US-BRISTOL-MYERS SQUIBB COMPANY-BMS-2017-016015

PATIENT
  Sex: Female

DRUGS (1)
  1. ABATACEPT [Suspect]
     Active Substance: ABATACEPT
     Indication: RHEUMATOID ARTHRITIS
     Dosage: 125 UNK, UNK
     Route: 058

REACTIONS (10)
  - Limb injury [Unknown]
  - Drug ineffective [Unknown]
  - Skin atrophy [Unknown]
  - Haemorrhage subcutaneous [Unknown]
  - Feeling jittery [Unknown]
  - Haemorrhage [Unknown]
  - Incorrect product storage [Unknown]
  - Pain [Unknown]
  - Bursitis [Unknown]
  - Nerve compression [Unknown]
